FAERS Safety Report 21710468 (Version 1)
Quarter: 2022Q4

REPORT INFORMATION
  Report Type: Spontaneous
  Country: US (occurrence: US)
  Receive Date: 20221212
  Receipt Date: 20221212
  Transmission Date: 20230112
  Serious: No
  Sender: FDA-Public Use
  Company Number: US-BIOVITRUM-2022US08106

PATIENT
  Age: 37 Year
  Sex: Female

DRUGS (1)
  1. KINERET [Suspect]
     Active Substance: ANAKINRA
     Indication: Pyrexia
     Dates: start: 20211125

REACTIONS (12)
  - Dyspepsia [Unknown]
  - Throat tightness [Unknown]
  - Heart rate increased [Unknown]
  - Hypertension [Unknown]
  - Illness [Unknown]
  - Respiratory tract infection [Unknown]
  - Illness [Unknown]
  - Nasopharyngitis [Unknown]
  - Secretion discharge [Unknown]
  - Drug hypersensitivity [Unknown]
  - Product dose omission issue [Unknown]
  - Off label use [Unknown]

NARRATIVE: CASE EVENT DATE: 20211125
